FAERS Safety Report 7372382-2 (Version None)
Quarter: 2011Q1

REPORT INFORMATION
  Report Type: 
  Country: None (occurrence: None)
  Receive Date: 20110324
  Receipt Date: 20110315
  Transmission Date: 20110831
  Serious: Yes (Hospitalization)
  Sender: FDA-Public Use
  Company Number: HR-JNJFOC-20101203444

PATIENT
  Age: 40 Year
  Sex: Male

DRUGS (7)
  1. RISPOLUX [Suspect]
     Indication: ACUTE PSYCHOSIS
     Dosage: 2MG-0-4MG
     Route: 065
  2. DIAZEPAM [Concomitant]
     Dosage: 5MG-5MG-10MG
     Route: 065
  3. AKINETON [Concomitant]
     Indication: ILL-DEFINED DISORDER
     Dosage: 1 TABLET IN THE MORNING
     Route: 065
  4. LEPONEX [Suspect]
     Indication: ILL-DEFINED DISORDER
     Dosage: 0-0-50MG
     Route: 065
  5. DIAZEPAM [Concomitant]
     Indication: ILL-DEFINED DISORDER
     Dosage: 3X10MG
     Route: 065
  6. PRAZINE [Concomitant]
     Indication: ILL-DEFINED DISORDER
     Dosage: 50-50-150MG
     Route: 065
  7. RISSET [Suspect]
     Indication: ILL-DEFINED DISORDER
     Dosage: 2MG-0-4MG
     Route: 065

REACTIONS (3)
  - HALLUCINATION, AUDITORY [None]
  - AGGRESSION [None]
  - ALCOHOLISM [None]
